FAERS Safety Report 8558325-4 (Version None)
Quarter: 2012Q3

REPORT INFORMATION
  Report Type: 
  Country: None (occurrence: None)
  Receive Date: 20120727
  Receipt Date: 20120727
  Transmission Date: 20120928
  Serious: Yes (Hospitalization)
  Sender: FDA-Public Use
  Company Number: None

PATIENT
  Age: 44 Year
  Sex: Male
  Weight: 77 kg

DRUGS (2)
  1. EXCEDRIN (MIGRAINE) [Suspect]
     Indication: MIGRAINE
     Dosage: 2-3 TABLETS QHS PO RECENT
     Route: 048
  2. IBUPROFEN [Suspect]
     Indication: MIGRAINE
     Dosage: 1-2 TABLETS TID PRN PO RECENT
     Route: 048

REACTIONS (2)
  - LOSS OF CONSCIOUSNESS [None]
  - DUODENAL ULCER HAEMORRHAGE [None]
